FAERS Safety Report 13477518 (Version 1)
Quarter: 2017Q2

REPORT INFORMATION
  Report Type: Spontaneous
  Country: SA (occurrence: US)
  Receive Date: 20170425
  Receipt Date: 20170425
  Transmission Date: 20170830
  Serious: Yes (Hospitalization, Other)
  Sender: FDA-Public Use
  Company Number: None

PATIENT
  Age: 79 Year
  Sex: Male
  Weight: 89 kg

DRUGS (1)
  1. RIVAROXABAN [Suspect]
     Active Substance: RIVAROXABAN
     Indication: ATRIAL FIBRILLATION
     Route: 048
     Dates: start: 20160115, end: 20160517

REACTIONS (4)
  - Blood pressure increased [None]
  - Dyspnoea [None]
  - Haemoglobin decreased [None]
  - Oesophagogastroscopy abnormal [None]

NARRATIVE: CASE EVENT DATE: 20160115
